FAERS Safety Report 5843709-5 (Version None)
Quarter: 2008Q3

REPORT INFORMATION
  Report Type: 
  Country: None (occurrence: None)
  Receive Date: 20080813
  Receipt Date: 20080506
  Transmission Date: 20090109
  Serious: No
  Sender: FDA-Public Use
  Company Number: US-BRISTOL-MYERS SQUIBB COMPANY-14154629

PATIENT
  Age: 28 Year
  Sex: Female
  Weight: 66 kg

DRUGS (5)
  1. IXEMPRA FOR INJ [Suspect]
     Indication: BREAST CANCER
     Route: 042
  2. KLONOPIN [Concomitant]
  3. TOPROL-XL [Concomitant]
  4. FISH OIL [Concomitant]
  5. CONTRACEPTIVE [Concomitant]

REACTIONS (2)
  - ACCIDENTAL EXPOSURE [None]
  - ERYTHEMA [None]
